FAERS Safety Report 24629232 (Version 2)
Quarter: 2024Q4

REPORT INFORMATION
  Report Type: Spontaneous
  Country: JP (occurrence: JP)
  Receive Date: 20241118
  Receipt Date: 20241212
  Transmission Date: 20250114
  Serious: Yes (Death, Hospitalization, Other)
  Sender: GLAXOSMITHKLINE
  Company Number: JP-TAKEDA-2024TJP016242

PATIENT

DRUGS (1)
  1. ZEJULA [Suspect]
     Active Substance: NIRAPARIB
     Indication: Ovarian cancer
     Dosage: 200 MILLIGRAM, QD
     Route: 048
     Dates: start: 20240930, end: 20241025

REACTIONS (2)
  - Ascites [Fatal]
  - Ovarian cancer [Fatal]

NARRATIVE: CASE EVENT DATE: 20241021
